FAERS Safety Report 4513209-3 (Version None)
Quarter: 2004Q4

REPORT INFORMATION
  Report Type: 
  Country: None (occurrence: None)
  Receive Date: 20041130
  Receipt Date: 20030605
  Transmission Date: 20050328
  Serious: Yes (Hospitalization, Other)
  Sender: FDA-Public Use
  Company Number: US-MERCK-0306USA00769

PATIENT
  Age: 52 Year
  Sex: Female
  Weight: 112 kg

DRUGS (2)
  1. VIOXX [Suspect]
     Route: 048
  2. EFFEXOR XR [Concomitant]
     Route: 065

REACTIONS (28)
  - ABDOMINAL PAIN [None]
  - ABSCESS [None]
  - ADVERSE EVENT [None]
  - ANGINA PECTORIS [None]
  - ATELECTASIS [None]
  - BLOOD CHOLESTEROL INCREASED [None]
  - BLOOD GLUCOSE DECREASED [None]
  - BRONCHITIS [None]
  - CARDIAC FAILURE CONGESTIVE [None]
  - CERVICAL CYST [None]
  - CHEST PAIN [None]
  - CONVULSION [None]
  - DYSPNOEA [None]
  - FACIAL PALSY [None]
  - GASTROOESOPHAGEAL REFLUX DISEASE [None]
  - HAND FRACTURE [None]
  - HEADACHE [None]
  - HYPERTENSION [None]
  - HYPOKALAEMIA [None]
  - LEUKOCYTOSIS [None]
  - NAUSEA [None]
  - PALPITATIONS [None]
  - PNEUMONITIS [None]
  - ROTATOR CUFF SYNDROME [None]
  - TRIGGER FINGER [None]
  - TUBO-OVARIAN ABSCESS [None]
  - UMBILICAL HERNIA [None]
  - VOMITING [None]
